FAERS Safety Report 4336269-1 (Version None)
Quarter: 2004Q2

REPORT INFORMATION
  Report Type: 
  Country: None (occurrence: None)
  Receive Date: 20040407
  Receipt Date: 20040323
  Transmission Date: 20050107
  Serious: Yes (Hospitalization, Other)
  Sender: FDA-Public Use
  Company Number: US_0403101763

PATIENT
  Sex: Female

DRUGS (1)
  1. HUMULIN R [Suspect]

REACTIONS (2)
  - COMA [None]
  - PHARMACEUTICAL PRODUCT COMPLAINT [None]
